FAERS Safety Report 4855849-8 (Version None)
Quarter: 2005Q4

REPORT INFORMATION
  Report Type: 
  Country: None (occurrence: None)
  Receive Date: 20051216
  Receipt Date: 20051215
  Transmission Date: 20060501
  Serious: Yes (Other)
  Sender: FDA-Public Use
  Company Number: 200514859EU

PATIENT
  Age: 51 Year
  Sex: Female

DRUGS (3)
  1. NICORETTE [Suspect]
     Dosage: 2MG SEE DOSAGE TEXT
     Route: 002
  2. TEMAZEPAM [Concomitant]
  3. DICLOFENAC [Concomitant]

REACTIONS (1)
  - DEPENDENCE [None]
